FAERS Safety Report 10881259 (Version 3)
Quarter: 2016Q1

REPORT INFORMATION
  Report Type: Spontaneous
  Country: US (occurrence: US)
  Receive Date: 20150303
  Receipt Date: 20160202
  Transmission Date: 20160525
  Serious: No
  Sender: FDA-Public Use
  Company Number: US-PFIZER INC-2015074620

PATIENT
  Age: 79 Year
  Sex: Female
  Weight: 90.7 kg

DRUGS (7)
  1. VERAPAMIL [Concomitant]
     Active Substance: VERAPAMIL HYDROCHLORIDE
     Indication: BLOOD PRESSURE ABNORMAL
     Dosage: 240 MG, UNK
  2. LEVOTHYROXINE. [Concomitant]
     Active Substance: LEVOTHYROXINE
     Indication: THYROID DISORDER
     Dosage: 75 MG, UNK
  3. PANTOR [Concomitant]
     Indication: FLATULENCE
  4. INLYTA [Suspect]
     Active Substance: AXITINIB
     Dosage: 7 DF, 2X/DAY (3 TABLETS IN THE MORNING AND 4 AT NIGHT)
     Dates: end: 201512
  5. INLYTA [Suspect]
     Active Substance: AXITINIB
     Indication: NEOPLASM MALIGNANT
     Dosage: 5 PILLS DAILY (3 PILL OF ^100 MG^ IN MORNING AND 2 PILLS IN THE NIGHT)
     Dates: start: 201411
  6. INLYTA [Suspect]
     Active Substance: AXITINIB
     Dosage: 5 DF, 2X/DAY (2 IN THE MORNING AND 3 AT NIGHT BY MOUTH)
     Route: 048
  7. GABAPENTIN. [Suspect]
     Active Substance: GABAPENTIN
     Indication: NEURALGIA
     Dosage: UNK

REACTIONS (8)
  - Nervousness [Unknown]
  - Feeling abnormal [Unknown]
  - Alopecia [Unknown]
  - Fatigue [Unknown]
  - Nausea [Recovered/Resolved]
  - Drug hypersensitivity [Unknown]
  - Blood pressure increased [Unknown]
  - Asthenia [Recovered/Resolved]

NARRATIVE: CASE EVENT DATE: 201512
